FAERS Safety Report 9182325 (Version 2)
Quarter: 2013Q1

REPORT INFORMATION
  Report Type: Spontaneous
  Country: US (occurrence: US)
  Receive Date: 20130322
  Receipt Date: 20130329
  Transmission Date: 20140127
  Serious: Yes (Other)
  Sender: FDA-Public Use
  Company Number: US-PFIZER INC-2013093212

PATIENT
  Age: 84 Year
  Sex: Female

DRUGS (13)
  1. DILANTIN [Suspect]
     Indication: CONVULSION
     Dosage: 100 MG, 1X/DAY
     Route: 048
     Dates: start: 2012
  2. DILANTIN [Suspect]
     Indication: CONVULSION
     Dosage: 50 MG, 1X/DAY AT NIGHT
     Route: 048
     Dates: start: 2012
  3. SPIRONOLACTONE [Suspect]
     Indication: CARDIAC DISORDER
     Dosage: 50 MG, 1X/DAY
  4. VITAMIN E [Suspect]
     Dosage: UNK
     Dates: start: 2012
  5. KEPPRA [Suspect]
     Indication: CONVULSION
     Dosage: 1000 MG, 2X/DAY
     Dates: start: 2012
  6. KEPPRA [Suspect]
     Dosage: 700 MG, 2X/DAY
  7. SEROQUEL [Suspect]
     Dosage: 100 MG AT MORNING AND 25 MG AT NIGHT, 2X/DAY
     Dates: start: 2012
  8. TOPROL XL [Suspect]
     Indication: BLOOD PRESSURE ABNORMAL
     Dosage: 50 MG, 2X/DAY
  9. TOPROL XL [Suspect]
     Indication: CARDIAC DISORDER
  10. COUMADIN [Suspect]
     Indication: INTERNATIONAL NORMALISED RATIO ABNORMAL
     Dosage: 4 MG, 1X/DAY
     Dates: start: 2012
  11. VITAMIN D [Suspect]
     Dosage: UNK
     Dates: start: 2012
  12. VITAMIN B12 [Suspect]
     Dosage: UNK
     Dates: start: 2012
  13. TEMAZEPAM [Concomitant]
     Indication: INSOMNIA
     Dosage: 30 MG, 1X/DAY AT BED TIME

REACTIONS (5)
  - Joint effusion [Unknown]
  - Gait disturbance [Unknown]
  - Pain [Recovering/Resolving]
  - Arthralgia [Recovering/Resolving]
  - Myalgia [Recovering/Resolving]
